FAERS Safety Report 11248877 (Version 1)
Quarter: 2015Q2

REPORT INFORMATION
  Report Type: Spontaneous
  Country: US (occurrence: None)
  Receive Date: 20150626
  Receipt Date: 20150626
  Transmission Date: 20150821
  Serious: Yes (Life-Threatening, Hospitalization, Other)
  Sender: FDA-Public Use
  Company Number: 003-285

PATIENT
  Age: 31 Year
  Sex: Male

DRUGS (1)
  1. CROFAB [Suspect]
     Active Substance: CROTALIDAE POLYVALENT IMMUNE FAB (OVINE)
     Indication: SNAKE BITE
     Dosage: 30 VIALS TOTAL

REACTIONS (7)
  - Haemoglobin decreased [None]
  - Thrombocytopenia [None]
  - Conjunctival haemorrhage [None]
  - Shock [None]
  - Haemorrhage [None]
  - Rhabdomyolysis [None]
  - Haematochezia [None]
